FAERS Safety Report 9657419 (Version 1)
Quarter: 2013Q4

REPORT INFORMATION
  Report Type: Report from Study
  Country: US (occurrence: US)
  Receive Date: 20131030
  Receipt Date: 20131030
  Transmission Date: 20140711
  Serious: Yes (Hospitalization, Other)
  Sender: FDA-Public Use
  Company Number: US-ABBVIE-13P-163-1160832-00

PATIENT
  Age: 50 Year
  Sex: Female
  Weight: 59.93 kg

DRUGS (8)
  1. HUMIRA [Suspect]
     Indication: CROHN^S DISEASE
     Route: 058
     Dates: start: 2009, end: 201308
  2. HUMIRA [Suspect]
     Route: 058
     Dates: start: 20131014
  3. TOPAMAX [Concomitant]
     Indication: HEADACHE
  4. ZOLOFT [Concomitant]
     Indication: INSOMNIA
  5. TIZANIDINE [Concomitant]
     Indication: MUSCLE SPASMS
  6. TIZANIDINE [Concomitant]
     Indication: INTERVERTEBRAL DISC DEGENERATION
  7. CLONAZEPAM [Concomitant]
     Indication: ANXIETY
  8. CLONAZEPAM [Concomitant]
     Indication: PANIC DISORDER

REACTIONS (12)
  - Feeling cold [Recovered/Resolved]
  - Dysarthria [Not Recovered/Not Resolved]
  - Blood potassium decreased [Unknown]
  - Bacterial infection [Unknown]
  - Pelvic pain [Recovering/Resolving]
  - Pelvic infection [Unknown]
  - Asthenia [Recovered/Resolved]
  - Fatigue [Recovered/Resolved]
  - Balance disorder [Not Recovered/Not Resolved]
  - Fatigue [Not Recovered/Not Resolved]
  - Panic attack [Recovered/Resolved]
  - Crohn^s disease [Not Recovered/Not Resolved]
